FAERS Safety Report 15827628 (Version 1)
Quarter: 2019Q1

REPORT INFORMATION
  Report Type: Spontaneous
  Country: GB (occurrence: GB)
  Receive Date: 20190115
  Receipt Date: 20190115
  Transmission Date: 20190417
  Serious: Yes (Hospitalization, Other)
  Sender: FDA-Public Use
  Company Number: GB-MYLANLABS-MK-6037573

PATIENT
  Age: 18 Year
  Sex: Female

DRUGS (9)
  1. COLOMYCIN                          /00013203/ [Interacting]
     Active Substance: COLISTIN SULFATE
     Dosage: 2 DF,TID
     Route: 042
     Dates: start: 2000
  2. COLOMYCIN                          /00013203/ [Interacting]
     Active Substance: COLISTIN SULFATE
     Indication: PSEUDOMONAS INFECTION
     Dosage: 2 DF,TID
     Route: 042
     Dates: start: 200010
  3. TOBRAMYCIN. [Suspect]
     Active Substance: TOBRAMYCIN
     Indication: PSEUDOMONAS INFECTION
     Dosage: 160 MG,TID
     Route: 042
     Dates: start: 200010
  4. TOBRAMYCIN. [Interacting]
     Active Substance: TOBRAMYCIN
     Dosage: 100 MG,TID
     Route: 042
     Dates: start: 2000
  5. COLOMYCIN                          /00013203/ [Interacting]
     Active Substance: COLISTIN SULFATE
     Dosage: 2 MILLION IU, TID
     Route: 042
  6. MEROPENEM. [Concomitant]
     Active Substance: MEROPENEM
     Indication: PSEUDOMONAS INFECTION
     Dosage: UNK
     Route: 065
     Dates: start: 2000
  7. COLOMYCIN                          /00013203/ [Interacting]
     Active Substance: COLISTIN SULFATE
     Dosage: 2 MILLION IU, TID
     Route: 042
     Dates: start: 200010
  8. TOBRAMYCIN. [Interacting]
     Active Substance: TOBRAMYCIN
     Dosage: 160 MG,TID
     Route: 042
     Dates: start: 2000
  9. TOBRAMYCIN. [Interacting]
     Active Substance: TOBRAMYCIN
     Dosage: 100 MG,BID
     Route: 042
     Dates: start: 2000

REACTIONS (9)
  - Drug interaction [Unknown]
  - Nephrolithiasis [Unknown]
  - Pyrexia [Recovered/Resolved]
  - Pyelonephritis acute [Recovered/Resolved with Sequelae]
  - Acute kidney injury [Not Recovered/Not Resolved]
  - Lethargy [Recovered/Resolved]
  - Nausea [Recovered/Resolved]
  - Vomiting [Recovered/Resolved]
  - Chills [Recovered/Resolved]

NARRATIVE: CASE EVENT DATE: 2000
